FAERS Safety Report 7734252-7 (Version None)
Quarter: 2011Q3

REPORT INFORMATION
  Report Type: 
  Country: None (occurrence: None)
  Receive Date: 20110907
  Receipt Date: 20110831
  Transmission Date: 20111222
  Serious: Yes (Hospitalization)
  Sender: FDA-Public Use
  Company Number: TW-SANOFI-AVENTIS-2011SA056562

PATIENT
  Age: 88 Year
  Sex: Male

DRUGS (20)
  1. ATENOLOL [Concomitant]
     Indication: HYPERTENSION
     Route: 048
     Dates: start: 20110322, end: 20110322
  2. ENOXAPARIN SODIUM [Suspect]
     Route: 058
     Dates: start: 20110322, end: 20110328
  3. DOXAZOSIN MESYLATE [Concomitant]
     Indication: BENIGN PROSTATIC HYPERPLASIA
     Route: 048
     Dates: start: 20110322, end: 20110322
  4. DOXAZOSIN MESYLATE [Concomitant]
     Route: 048
     Dates: start: 20110323, end: 20110428
  5. ASPIRIN [Concomitant]
     Route: 048
     Dates: start: 20110320, end: 20110320
  6. SENNOSIDE A+B [Concomitant]
     Indication: CONSTIPATION
     Route: 048
     Dates: start: 20110322, end: 20110331
  7. HEPARIN [Concomitant]
     Route: 048
     Dates: start: 20110320, end: 20110322
  8. NORMODYNE [Concomitant]
     Indication: HYPERTENSION
     Route: 048
     Dates: start: 20110320, end: 20110320
  9. CEFAZOLIN [Concomitant]
     Indication: INFLAMMATION
     Route: 048
     Dates: start: 20110320, end: 20110321
  10. AMLODIPINE/VALSARTAN [Concomitant]
     Indication: HYPERTENSION
     Route: 048
     Dates: start: 20110322, end: 20110322
  11. AMLODIPINE/VALSARTAN [Concomitant]
     Route: 048
     Dates: start: 20110323
  12. SENNOSIDE A+B [Concomitant]
     Route: 048
     Dates: start: 20110322, end: 20110322
  13. TAMSULOSIN HCL [Concomitant]
     Indication: BENIGN PROSTATIC HYPERPLASIA
     Route: 048
     Dates: start: 20110320, end: 20110320
  14. CAPTOPRIL [Concomitant]
     Indication: HYPERTENSION
     Route: 048
     Dates: start: 20110320, end: 20110320
  15. CAPTOPRIL [Concomitant]
     Route: 048
     Dates: start: 20110320, end: 20110322
  16. AMLODIPINE BESYLATE [Concomitant]
     Indication: HYPERTENSION
     Route: 048
     Dates: start: 20110320, end: 20110320
  17. AMLODIPINE BESYLATE [Concomitant]
     Route: 048
     Dates: start: 20110320, end: 20110322
  18. INVESTIGATIONAL DRUG [Suspect]
     Route: 048
     Dates: start: 20110329
  19. INVESTIGATIONAL DRUG [Suspect]
     Route: 048
     Dates: start: 20110322, end: 20110328
  20. FUROSEMIDE [Concomitant]
     Indication: BENIGN PROSTATIC HYPERPLASIA
     Route: 048
     Dates: start: 20110323, end: 20110325

REACTIONS (1)
  - INTERNATIONAL NORMALISED RATIO INCREASED [None]
